FAERS Safety Report 8600794-5 (Version None)
Quarter: 2012Q3

REPORT INFORMATION
  Report Type: 
  Country: None (occurrence: None)
  Receive Date: 20120817
  Receipt Date: 20120813
  Transmission Date: 20120928
  Serious: Yes (Hospitalization)
  Sender: FDA-Public Use
  Company Number: FR-AMGEN-FRACT2012044036

PATIENT
  Age: 55 Year
  Sex: Female

DRUGS (7)
  1. NEXIUM [Concomitant]
  2. DOMPERIDONE [Concomitant]
     Indication: NAUSEA
  3. PANITUMUMAB [Suspect]
     Indication: ANAL CANCER
     Dosage: 180 MG, UNK
     Route: 042
     Dates: start: 20120618
  4. MITOMYCIN [Concomitant]
     Indication: ANAL CANCER
     Dosage: UNK
     Dates: start: 20120618
  5. KETOPROFEN [Concomitant]
  6. FLUOROURACIL [Concomitant]
     Indication: ANAL CANCER
     Dosage: UNK
     Dates: start: 20120618
  7. ACETAMINOPHEN AND TRAMADOL HCL [Concomitant]

REACTIONS (1)
  - FEBRILE NEUTROPENIA [None]
